FAERS Safety Report 6682304-5 (Version None)
Quarter: 2010Q2

REPORT INFORMATION
  Report Type: 
  Country: None (occurrence: None)
  Receive Date: 20100414
  Receipt Date: 20100414
  Transmission Date: 20101027
  Serious: Yes (Death, Life-Threatening, Hospitalization, Disabling)
  Sender: FDA-Public Use
  Company Number: None

PATIENT
  Age: 70 Year
  Sex: Male
  Weight: 79.3795 kg

DRUGS (2)
  1. REGLAN [Suspect]
     Indication: CEREBROVASCULAR ACCIDENT
     Dosage: OCT - NOV
  2. HEPARIN [Suspect]
     Dates: end: 19981204

REACTIONS (3)
  - CEREBROVASCULAR ACCIDENT [None]
  - DYSKINESIA [None]
  - FALL [None]
